FAERS Safety Report 9483958 (Version 1)
Quarter: 2013Q3

REPORT INFORMATION
  Report Type: Spontaneous
  Country: US (occurrence: US)
  Receive Date: 20130828
  Receipt Date: 20130828
  Transmission Date: 20140515
  Serious: Yes (Other)
  Sender: FDA-Public Use
  Company Number: US-BAXTER-2013BAX033735

PATIENT
  Age: 54 Year
  Sex: Female

DRUGS (4)
  1. GAMMAGARD LIQUID [Suspect]
     Indication: VISUAL IMPAIRMENT
  2. GAMMAGARD LIQUID [Suspect]
     Indication: OFF LABEL USE
  3. PYRIDOSTIGMINE [Suspect]
     Indication: VISUAL IMPAIRMENT
  4. TOPIRAMATE [Concomitant]
     Indication: CONVULSION

REACTIONS (1)
  - Drug ineffective [Unknown]
